FAERS Safety Report 8978992 (Version 1)
Quarter: 2012Q4

REPORT INFORMATION
  Report Type: 
  Country: US (occurrence: US)
  Receive Date: 20121221
  Receipt Date: 20121221
  Transmission Date: 20130627
  Serious: No
  Sender: FDA-Public Use
  Company Number: US-009507513-1212USA007251

PATIENT
  Sex: Female
  Weight: 54.42 kg

DRUGS (6)
  1. GANIRELIX ACETATE INJECTION [Suspect]
     Indication: IN VITRO FERTILISATION
     Dosage: UNK
     Dates: start: 20121107, end: 20121107
  2. GONADOTROPIN, CHORIONIC [Suspect]
     Indication: IN VITRO FERTILISATION
     Dosage: UNK UNK, Once
     Dates: start: 20121109, end: 20121109
  3. BRAVELLE [Suspect]
     Indication: IN VITRO FERTILISATION
     Dosage: 4 vials every night
     Route: 030
     Dates: start: 20121023, end: 20121107
  4. BRAVELLE [Suspect]
     Dosage: 4 vials every night
     Route: 030
     Dates: start: 20121130
  5. MENOPUR [Suspect]
     Indication: IN VITRO FERTILISATION
     Dosage: 2 vials every night
     Route: 030
     Dates: start: 20121023, end: 20121107
  6. MENOPUR [Suspect]
     Dosage: 2 vials every night
     Route: 030
     Dates: start: 20121130

REACTIONS (2)
  - Drug ineffective [Unknown]
  - Breast feeding [Unknown]
